FAERS Safety Report 10487933 (Version 1)
Quarter: 2014Q4

REPORT INFORMATION
  Report Type: Spontaneous
  Country: IT (occurrence: IT)
  Receive Date: 20141001
  Receipt Date: 20141001
  Transmission Date: 20150528
  Serious: Yes (Hospitalization)
  Sender: FDA-Public Use
  Company Number: IT-ACTAVIS-2014-20994

PATIENT
  Age: 97 Year
  Sex: Female

DRUGS (3)
  1. QUETIAPINE FUMARATE (UNKNOWN) [Suspect]
     Active Substance: QUETIAPINE FUMARATE
     Indication: PSYCHOMOTOR HYPERACTIVITY
  2. QUETIAPINE FUMARATE (UNKNOWN) [Suspect]
     Active Substance: QUETIAPINE FUMARATE
     Indication: DEMENTIA
     Dosage: 37.5 MG, DAILY (1/2 TAB AT 10:00 AND 1 TAB AT 20:00)
     Route: 048
     Dates: start: 20140315, end: 20140315
  3. QUETIAPINE FUMARATE (UNKNOWN) [Suspect]
     Active Substance: QUETIAPINE FUMARATE
     Indication: ABNORMAL BEHAVIOUR

REACTIONS (2)
  - Decreased appetite [Recovered/Resolved]
  - Sopor [Recovered/Resolved]

NARRATIVE: CASE EVENT DATE: 20140316
